FAERS Safety Report 13610306 (Version 1)
Quarter: 2017Q2

REPORT INFORMATION
  Report Type: Spontaneous
  Country: US (occurrence: US)
  Receive Date: 20170602
  Receipt Date: 20170602
  Transmission Date: 20170830
  Serious: No
  Sender: FDA-Public Use
  Company Number: None

PATIENT
  Age: 73 Year
  Sex: Female

DRUGS (1)
  1. LISINOPRIL. [Suspect]
     Active Substance: LISINOPRIL
     Dosage: 1 DF DOSAGE FORM DAILY ORAL
     Route: 048
     Dates: start: 20170516, end: 20170601

REACTIONS (3)
  - Pruritus [None]
  - Reaction to drug excipients [None]
  - Product substitution issue [None]

NARRATIVE: CASE EVENT DATE: 20170520
